FAERS Safety Report 13641711 (Version 1)
Quarter: 2017Q2

REPORT INFORMATION
  Report Type: Spontaneous
  Country: US (occurrence: US)
  Receive Date: 20170609
  Receipt Date: 20170609
  Transmission Date: 20170830
  Serious: No
  Sender: FDA-Public Use
  Company Number: None

PATIENT
  Age: 53 Year
  Sex: Female
  Weight: 56.25 kg

DRUGS (4)
  1. ANTIVERT [Concomitant]
     Active Substance: MECLIZINE HYDROCHLORIDE
  2. VITAMIN C [Suspect]
     Active Substance: ASCORBIC ACID
     Indication: VITAMIN C DEFICIENCY
     Route: 042
     Dates: start: 20170331, end: 20170421
  3. DEXPANTHENOL. [Suspect]
     Active Substance: DEXPANTHENOL
     Indication: VITAMIN B COMPLEX DEFICIENCY
     Route: 042
     Dates: start: 20170331, end: 20170421
  4. ELIDEL [Concomitant]
     Active Substance: PIMECROLIMUS

REACTIONS (13)
  - Dizziness [None]
  - Abdominal pain upper [None]
  - Nausea [None]
  - Fatigue [None]
  - Chills [None]
  - Chest discomfort [None]
  - Tension headache [None]
  - Heart rate increased [None]
  - Palpitations [None]
  - Flatulence [None]
  - Paraesthesia [None]
  - Eructation [None]
  - Vertigo [None]

NARRATIVE: CASE EVENT DATE: 20170422
